FAERS Safety Report 13968016 (Version 1)
Quarter: 2017Q3

REPORT INFORMATION
  Report Type: Spontaneous
  Country: US (occurrence: US)
  Receive Date: 20170914
  Receipt Date: 20170914
  Transmission Date: 20171128
  Serious: Yes (Hospitalization, Other)
  Sender: FDA-Public Use
  Company Number: US-MYLANLABS-2017M1056467

PATIENT
  Age: 37 Year
  Sex: Female

DRUGS (1)
  1. AMFETAMINE/DEXAMFETAMINE [Suspect]
     Active Substance: AMPHETAMINE SULFATE\DEXTROAMPHETAMINE
     Indication: DRUG USE DISORDER
     Route: 013

REACTIONS (9)
  - Rhabdomyolysis [Recovered/Resolved]
  - Injection site oedema [Recovering/Resolving]
  - Pain in extremity [Recovering/Resolving]
  - Burning sensation [Unknown]
  - Drug abuse [Unknown]
  - Wrong technique in product usage process [Unknown]
  - Injection site discolouration [Recovering/Resolving]
  - Incorrect route of drug administration [Unknown]
  - Muscle necrosis [Recovering/Resolving]
